FAERS Safety Report 6084134-4 (Version None)
Quarter: 2009Q1

REPORT INFORMATION
  Report Type: 
  Country: None (occurrence: None)
  Receive Date: 20090219
  Receipt Date: 20090210
  Transmission Date: 20090719
  Serious: Yes (Death)
  Sender: FDA-Public Use
  Company Number: BE-AVENTIS-200911346GDDC

PATIENT
  Sex: Female
  Weight: 54 kg

DRUGS (6)
  1. TAXOTERE [Suspect]
     Indication: NON-SMALL CELL LUNG CANCER
     Route: 042
     Dates: start: 20070723, end: 20070723
  2. CISPLATIN [Suspect]
     Indication: NON-SMALL CELL LUNG CANCER
     Route: 042
     Dates: start: 20070723, end: 20070723
  3. GLUCOPHAGE [Concomitant]
     Dosage: DOSE: UNK
  4. ZESTRIL [Concomitant]
     Dosage: DOSE: UNK
  5. EMCONCOR                           /00802601/ [Concomitant]
     Dosage: DOSE: UNK
  6. NEXIUM [Concomitant]
     Dosage: DOSE: UNK

REACTIONS (2)
  - DUODENAL ULCER PERFORATION [None]
  - SEPTIC SHOCK [None]
